FAERS Safety Report 23125346 (Version 1)
Quarter: 2023Q4

REPORT INFORMATION
  Report Type: Spontaneous
  Country: US (occurrence: None)
  Receive Date: 20231030
  Receipt Date: 20231030
  Transmission Date: 20240110
  Serious: No
  Sender: FDA-Public Use
  Company Number: None

PATIENT
  Age: 69 Year
  Sex: Female
  Weight: 97.07 kg

DRUGS (2)
  1. RINVOQ [Suspect]
     Active Substance: UPADACITINIB
     Indication: Axial spondyloarthritis
     Dosage: FREQUENCY : DAILY;?
     Route: 048
     Dates: start: 202309
  2. RINVOQ [Suspect]
     Active Substance: UPADACITINIB
     Indication: Axial spondyloarthritis

REACTIONS (4)
  - Malaise [None]
  - Therapy cessation [None]
  - Dyspnoea [None]
  - Peripheral swelling [None]
